FAERS Safety Report 20612545 (Version 1)
Quarter: 2022Q1

REPORT INFORMATION
  Report Type: Spontaneous
  Country: CH (occurrence: CH)
  Receive Date: 20220318
  Receipt Date: 20220318
  Transmission Date: 20220423
  Serious: Yes (Hospitalization)
  Sender: FDA-Public Use
  Company Number: None

PATIENT
  Age: 71 Year
  Sex: Male
  Weight: 71 kg

DRUGS (9)
  1. KEYTRUDA [Suspect]
     Active Substance: PEMBROLIZUMAB
     Indication: Lung adenocarcinoma
     Dosage: 200 MILLIGRAM, CYCLICAL (ROUTE ALSO REPORTED AS 042)
     Route: 042
     Dates: start: 20210721, end: 20211103
  2. ALIMTA [Concomitant]
     Active Substance: PEMETREXED DISODIUM
     Dosage: 779 MILLIGRAM, CYCLICAL (ROUTE ALSO REPORTED AS 042)
     Route: 042
     Dates: start: 20210721, end: 20211013
  3. PARAPLATIN [Concomitant]
     Active Substance: CARBOPLATIN
     Dosage: 339 MILLIGRAM, CYCLICAL (ROUTE ALSO REPORTED AS 042)
     Route: 042
     Dates: start: 20210721, end: 20211013
  4. PLAVIX [Concomitant]
     Active Substance: CLOPIDOGREL BISULFATE
  5. FOLVITE [FOLATE SODIUM] [Concomitant]
  6. ROSUVASTATIN [Concomitant]
     Active Substance: ROSUVASTATIN
  7. PREGABALIN [Concomitant]
     Active Substance: PREGABALIN
  8. ANORO ELLIPTA [Concomitant]
     Active Substance: UMECLIDINIUM BROMIDE\VILANTEROL TRIFENATATE
  9. PANTOPRAZOLE SODIUM [Concomitant]
     Active Substance: PANTOPRAZOLE SODIUM

REACTIONS (1)
  - Chronic inflammatory demyelinating polyradiculoneuropathy [Not Recovered/Not Resolved]

NARRATIVE: CASE EVENT DATE: 20211015
